FAERS Safety Report 18257902 (Version 1)
Quarter: 2020Q3

REPORT INFORMATION
  Report Type: Spontaneous
  Country: US (occurrence: US)
  Receive Date: 20200911
  Receipt Date: 20200911
  Transmission Date: 20201103
  Serious: Yes (Life-Threatening, Hospitalization, Other)
  Sender: FDA-Public Use
  Company Number: None

PATIENT
  Age: 25 Year
  Sex: Female
  Weight: 65.7 kg

DRUGS (1)
  1. WET WIPES [Suspect]
     Active Substance: BENZETHONIUM CHLORIDE
     Indication: COVID-19 PROPHYLAXIS
     Route: 061

REACTIONS (6)
  - Anaphylactic reaction [None]
  - Ocular hyperaemia [None]
  - Eye pruritus [None]
  - Cough [None]
  - Rhinorrhoea [None]
  - Dyspnoea [None]

NARRATIVE: CASE EVENT DATE: 20200705
